FAERS Safety Report 20233898 (Version 1)
Quarter: 2021Q4

REPORT INFORMATION
  Report Type: Spontaneous
  Country: US (occurrence: None)
  Receive Date: 20211227
  Receipt Date: 20211227
  Transmission Date: 20220304
  Serious: Yes (Other)
  Sender: FDA-Public Use
  Company Number: None

PATIENT
  Age: 41 Year
  Sex: Female

DRUGS (1)
  1. BAMLANIVIMAB\ETESEVIMAB [Suspect]
     Active Substance: BAMLANIVIMAB\ETESEVIMAB

REACTIONS (2)
  - Dyspnoea [None]
  - Infusion related reaction [None]

NARRATIVE: CASE EVENT DATE: 20211208
